FAERS Safety Report 5949106-6 (Version None)
Quarter: 2008Q4

REPORT INFORMATION
  Report Type: 
  Country: None (occurrence: None)
  Receive Date: 20081111
  Receipt Date: 20081105
  Transmission Date: 20090506
  Serious: No
  Sender: FDA-Public Use
  Company Number: US-B.I. PHARMACEUTICALS,INC./RIDGEFIELD-2008-BP-07851BP

PATIENT
  Sex: Male

DRUGS (3)
  1. FLOMAX [Suspect]
     Indication: BENIGN PROSTATIC HYPERPLASIA
     Dosage: .4MG
     Route: 048
     Dates: start: 20080101
  2. FLOMAX [Suspect]
     Indication: URINARY RETENTION
  3. MORPHINE SULFATE [Concomitant]
     Indication: PAIN
     Route: 054
     Dates: start: 20060701

REACTIONS (1)
  - EJACULATION FAILURE [None]
